FAERS Safety Report 25704748 (Version 1)
Quarter: 2025Q3

REPORT INFORMATION
  Report Type: Spontaneous
  Country: CA (occurrence: CA)
  Receive Date: 20250820
  Receipt Date: 20250820
  Transmission Date: 20251020
  Serious: Yes (Hospitalization, Other)
  Sender: JOHNSON AND JOHNSON
  Company Number: CA-JNJFOC-20250814410

PATIENT
  Age: 59 Year
  Sex: Male

DRUGS (41)
  1. INVEGA [Suspect]
     Active Substance: PALIPERIDONE
     Indication: Schizophrenia
     Route: 048
  2. INVEGA [Suspect]
     Active Substance: PALIPERIDONE
     Route: 048
  3. CLOZAPINE [Suspect]
     Active Substance: CLOZAPINE
     Indication: Schizophrenia
     Route: 048
  4. CLOZAPINE [Suspect]
     Active Substance: CLOZAPINE
     Route: 048
  5. CLOZAPINE [Suspect]
     Active Substance: CLOZAPINE
     Route: 048
  6. CLOZAPINE [Suspect]
     Active Substance: CLOZAPINE
     Route: 048
  7. CLOZAPINE [Suspect]
     Active Substance: CLOZAPINE
     Route: 048
  8. QUETIAPINE FUMARATE [Suspect]
     Active Substance: QUETIAPINE FUMARATE
     Indication: Schizophrenia
     Route: 048
  9. ACETAMINOPHEN [Concomitant]
     Active Substance: ACETAMINOPHEN
     Indication: Pain
     Route: 048
  10. ACETAMINOPHEN [Concomitant]
     Active Substance: ACETAMINOPHEN
     Route: 054
  11. ACETAMINOPHEN [Concomitant]
     Active Substance: ACETAMINOPHEN
     Route: 048
  12. AMLODIPINE [Concomitant]
     Active Substance: AMLODIPINE BESYLATE
     Indication: Hypertension
     Route: 048
  13. ARIPIPRAZOLE [Concomitant]
     Active Substance: ARIPIPRAZOLE
     Indication: Product used for unknown indication
     Route: 048
  14. ATORVASTATIN CALCIUM [Concomitant]
     Active Substance: ATORVASTATIN CALCIUM
     Indication: Dyslipidaemia
     Route: 048
  15. BISOPROLOL [Concomitant]
     Active Substance: BISOPROLOL
     Indication: Product used for unknown indication
     Route: 048
  16. CLEARLAX [Concomitant]
     Active Substance: POLYETHYLENE GLYCOL 3350
     Indication: Product used for unknown indication
     Dosage: POWDER FOR SOLUTION ORAL
  17. DEXTROMETHORPHAN [Concomitant]
     Active Substance: DEXTROMETHORPHAN
     Indication: Product used for unknown indication
     Route: 048
  18. DEXTROSE [Concomitant]
     Active Substance: DEXTROSE MONOHYDRATE
     Indication: Product used for unknown indication
     Route: 042
  19. FUROSEMIDE SODIUM [Concomitant]
     Active Substance: FUROSEMIDE SODIUM
     Indication: Product used for unknown indication
     Route: 042
  20. GLICLAZIDE [Concomitant]
     Active Substance: GLICLAZIDE
     Indication: Hyperglycaemia
     Route: 048
  21. IBUPROFEN [Concomitant]
     Active Substance: IBUPROFEN
     Indication: Pain
     Route: 048
  22. INSULIN NOS [Concomitant]
     Active Substance: INSULIN NOS
     Indication: Product used for unknown indication
     Dosage: GLOBULES ORAL
     Route: 058
  23. IPRATROPIUM [Concomitant]
     Active Substance: IPRATROPIUM
     Indication: Product used for unknown indication
  24. LOPERAMIDE [Concomitant]
     Active Substance: LOPERAMIDE
     Indication: Schizophrenia
     Route: 048
  25. LOPERAMIDE [Concomitant]
     Active Substance: LOPERAMIDE
     Indication: Anxiety
     Route: 048
  26. POLYETHYLENE GLYCOL\PROPYLENE GLYCOL [Concomitant]
     Active Substance: POLYETHYLENE GLYCOL\PROPYLENE GLYCOL
     Indication: Product used for unknown indication
     Dosage: INTRANASAL
  27. MAGNESIUM GLUCONATE [Concomitant]
     Active Substance: MAGNESIUM GLUCONATE
     Indication: Product used for unknown indication
     Route: 048
  28. METFORMIN [Concomitant]
     Active Substance: METFORMIN HYDROCHLORIDE
     Indication: Hyperglycaemia
     Route: 048
  29. METFORMIN [Concomitant]
     Active Substance: METFORMIN HYDROCHLORIDE
  30. OLANZAPINE [Concomitant]
     Active Substance: OLANZAPINE
     Indication: Product used for unknown indication
     Route: 030
  31. OLANZAPINE [Concomitant]
     Active Substance: OLANZAPINE
     Route: 060
  32. OLANZAPINE [Concomitant]
     Active Substance: OLANZAPINE
     Route: 048
  33. ONDANSETRON DCI [ONDANSETRON] [Concomitant]
     Indication: Product used for unknown indication
     Route: 048
  34. ONDANSETRON DCI [ONDANSETRON] [Concomitant]
     Route: 042
  35. PERINDOPRIL [Concomitant]
     Active Substance: PERINDOPRIL
     Indication: Hypertension
     Route: 048
  36. POTASSIUM CHLORIDE [Concomitant]
     Active Substance: POTASSIUM CHLORIDE
     Indication: Product used for unknown indication
     Route: 048
  37. ALBUTEROL [Concomitant]
     Active Substance: ALBUTEROL
     Indication: Product used for unknown indication
  38. ALBUTEROL [Concomitant]
     Active Substance: ALBUTEROL
  39. SODIUM CHLORIDE [Concomitant]
     Active Substance: SODIUM CHLORIDE
     Indication: Product used for unknown indication
     Dosage: INTRA-NASAL
  40. TINZAPARIN [TINZAPARIN SODIUM] [Concomitant]
     Indication: Product used for unknown indication
     Route: 058
  41. ZOPICLONE [Concomitant]
     Active Substance: ZOPICLONE
     Indication: Product used for unknown indication
     Route: 048

REACTIONS (24)
  - Acute respiratory failure [Recovering/Resolving]
  - Altered state of consciousness [Recovering/Resolving]
  - Aspiration [Recovering/Resolving]
  - Delirium [Recovering/Resolving]
  - Pneumonia influenzal [Recovering/Resolving]
  - Respiratory failure [Recovering/Resolving]
  - Decreased appetite [Recovering/Resolving]
  - Diarrhoea [Recovering/Resolving]
  - Dysphagia [Recovering/Resolving]
  - Dysuria [Recovering/Resolving]
  - Fall [Recovering/Resolving]
  - Hyperglycaemia [Recovering/Resolving]
  - Hypertension [Recovering/Resolving]
  - Normocytic anaemia [Recovering/Resolving]
  - Oropharyngeal pain [Recovering/Resolving]
  - Paranoia [Recovering/Resolving]
  - Penis disorder [Recovering/Resolving]
  - Persecutory delusion [Recovering/Resolving]
  - Psychiatric decompensation [Recovering/Resolving]
  - Speech disorder [Recovering/Resolving]
  - Tachycardia [Recovering/Resolving]
  - Treatment noncompliance [Recovering/Resolving]
  - Troponin increased [Recovering/Resolving]
  - Urinary incontinence [Recovering/Resolving]
